FAERS Safety Report 25895160 (Version 2)
Quarter: 2025Q4

REPORT INFORMATION
  Report Type: Spontaneous
  Country: LB (occurrence: LB)
  Receive Date: 20251008
  Receipt Date: 20251013
  Transmission Date: 20260117
  Serious: Yes (Death)
  Sender: ROCHE
  Company Number: LB-ROCHE-10000404920

PATIENT

DRUGS (4)
  1. GLOFITAMAB [Suspect]
     Active Substance: GLOFITAMAB
     Indication: Product used for unknown indication
     Route: 065
     Dates: start: 20250804
  2. GLOFITAMAB [Suspect]
     Active Substance: GLOFITAMAB
     Route: 065
     Dates: start: 20250811
  3. GLOFITAMAB [Suspect]
     Active Substance: GLOFITAMAB
     Route: 065
     Dates: start: 20250825
  4. OBINUTUZUMAB [Suspect]
     Active Substance: OBINUTUZUMAB
     Indication: Product used for unknown indication
     Route: 065
     Dates: start: 20250728

REACTIONS (1)
  - Death [Fatal]
